FAERS Safety Report 4273295-5 (Version None)
Quarter: 2004Q1

REPORT INFORMATION
  Report Type: 
  Country: None (occurrence: None)
  Receive Date: 20040115
  Receipt Date: 20040115
  Transmission Date: 20041129
  Serious: Yes (Hospitalization)
  Sender: FDA-Public Use
  Company Number: None

PATIENT
  Age: 52 Year
  Sex: Male
  Weight: 60.4 kg

DRUGS (1)
  1. IBUPROFEN [Suspect]
     Indication: ARTHRALGIA
     Dosage: 1 BOTTLE IN 1 WEEK (100 TABS?)

REACTIONS (3)
  - GASTRIC ULCER [None]
  - GASTRITIS EROSIVE [None]
  - MEDICATION ERROR [None]
